FAERS Safety Report 21061121 (Version 2)
Quarter: 2022Q4

REPORT INFORMATION
  Report Type: Spontaneous
  Country: US (occurrence: US)
  Receive Date: 20220709
  Receipt Date: 20221007
  Transmission Date: 20230112
  Serious: No
  Sender: FDA-Public Use
  Company Number: US-SA-SAC20220705000795

PATIENT
  Age: 41 Year
  Sex: Male

DRUGS (1)
  1. DUPIXENT [Suspect]
     Active Substance: DUPILUMAB
     Dosage: 300 MG
     Route: 058
     Dates: start: 202112

REACTIONS (5)
  - Illness [Unknown]
  - Ocular hyperaemia [Unknown]
  - Malaise [Unknown]
  - Periorbital swelling [Unknown]
  - Inappropriate schedule of product administration [Unknown]
